FAERS Safety Report 23238053 (Version 1)
Quarter: 2023Q4

REPORT INFORMATION
  Report Type: Spontaneous
  Country: US (occurrence: US)
  Receive Date: 20231129
  Receipt Date: 20231129
  Transmission Date: 20240110
  Serious: No
  Sender: FDA-Public Use
  Company Number: US-AMGEN-USASP2023209354

PATIENT
  Age: 75 Year
  Sex: Female

DRUGS (3)
  1. PROLIA [Suspect]
     Active Substance: DENOSUMAB
     Indication: Osteitis deformans
     Dosage: UNK
     Route: 065
     Dates: start: 202012
  2. PROLIA [Suspect]
     Active Substance: DENOSUMAB
     Indication: Osteopenia
  3. ZOLEDRONIC ACID [Concomitant]
     Active Substance: ZOLEDRONIC ACID
     Dosage: UNK
     Route: 065

REACTIONS (4)
  - Drug effective for unapproved indication [Unknown]
  - Blood alkaline phosphatase increased [Recovered/Resolved]
  - Off label use [Unknown]
  - Hypocalcaemia [Unknown]

NARRATIVE: CASE EVENT DATE: 20201201
